FAERS Safety Report 15021971 (Version 1)
Quarter: 2018Q2

REPORT INFORMATION
  Report Type: Spontaneous
  Country: US (occurrence: US)
  Receive Date: 20180618
  Receipt Date: 20180618
  Transmission Date: 20180711
  Serious: Yes (Other)
  Sender: FDA-Public Use
  Company Number: US-JNJFOC-20180620847

PATIENT
  Age: 69 Year
  Sex: Female

DRUGS (2)
  1. XARELTO [Suspect]
     Active Substance: RIVAROXABAN
     Indication: PULMONARY EMBOLISM
     Route: 048
  2. OXYGEN. [Concomitant]
     Active Substance: OXYGEN
     Indication: RESPIRATORY DISTRESS
     Route: 055

REACTIONS (4)
  - Haemoptysis [Recovered/Resolved]
  - Heart rate increased [Recovered/Resolved]
  - Chest pain [Unknown]
  - Respiratory distress [Recovering/Resolving]
